FAERS Safety Report 14283133 (Version 2)
Quarter: 2018Q1

REPORT INFORMATION
  Report Type: Report from Study
  Country: US (occurrence: US)
  Receive Date: 20171213
  Receipt Date: 20180125
  Transmission Date: 20180508
  Serious: Yes (Death)
  Sender: FDA-Public Use
  Company Number: US-ACTELION-A-NJ2017-157668

PATIENT
  Age: 73 Year
  Sex: Female
  Weight: 37.19 kg

DRUGS (7)
  1. SILDENAFIL. [Concomitant]
     Active Substance: SILDENAFIL
  2. ESBRIET [Suspect]
     Active Substance: PIRFENIDONE
     Indication: PRODUCT USED FOR UNKNOWN INDICATION
     Dosage: UNK UNK, BID
     Route: 065
  3. OPSUMIT [Suspect]
     Active Substance: MACITENTAN
     Indication: INTERSTITIAL LUNG DISEASE
     Dosage: 10 MG, QD
     Route: 048
  4. UPTRAVI [Suspect]
     Active Substance: SELEXIPAG
     Dosage: 600 MCG, BID
     Route: 048
  5. UPTRAVI [Suspect]
     Active Substance: SELEXIPAG
     Dosage: UNK
     Route: 048
  6. UPTRAVI [Suspect]
     Active Substance: SELEXIPAG
     Dosage: 200 MCG, UNK
     Route: 048
  7. UPTRAVI [Suspect]
     Active Substance: SELEXIPAG
     Indication: INTERSTITIAL LUNG DISEASE
     Dosage: 400 MCG, BID
     Route: 048
     Dates: start: 20170727

REACTIONS (10)
  - Oxygen saturation decreased [Unknown]
  - Headache [Not Recovered/Not Resolved]
  - Interstitial lung disease [Fatal]
  - Ear pain [Unknown]
  - Back pain [Recovered/Resolved]
  - Adverse drug reaction [Unknown]
  - Concomitant disease progression [Fatal]
  - Pain in jaw [Recovered/Resolved]
  - Migraine [Unknown]
  - Wound infection [Unknown]

NARRATIVE: CASE EVENT DATE: 20170728
